FAERS Safety Report 9147294 (Version 1)
Quarter: 2013Q1

REPORT INFORMATION
  Report Type: Spontaneous
  Country: GR (occurrence: None)
  Receive Date: 20130226
  Receipt Date: 20130226
  Transmission Date: 20140127
  Serious: Yes (Death)
  Sender: FDA-Public Use
  Company Number: SYM-2013-00872

PATIENT
  Sex: Female

DRUGS (5)
  1. 5-FU [Suspect]
     Indication: COLORECTAL CANCER METASTATIC
     Dosage: 400  MG/M2,  INTRAVENOUS BOLUS?UNKNWON  -  UNKNOWN
     Route: 040
  2. CETUXIMAB [Suspect]
     Indication: COLORECTAL CANCER METASTATIC
     Dosage: 500  MG/M2,  EVERY 2 WEEKS?UNKNOWN  -  UNKNOWN?
  3. IRINOTECAN [Suspect]
     Indication: COLORECTAL CANCER METASTATIC
     Dosage: 150  MG/M2,  INTRAVENOUS (NOT OTHERWISE SPECIFIED)?UNKNOWN  -  UNKNOWN
     Route: 042
  4. LEUCOVORIN [Suspect]
     Indication: COLORECTAL CANCER METASTATIC
     Dosage: 200  MG/M2,  INTRAVENOUS (NOT OTHERWISE SPECIFED)?UNKNWON  -  UNKNOWN
     Route: 042
  5. ANTIHISTAMINES (ANTIHISTAMINES) [Concomitant]
     Indication: COLORECTAL CANCER METASTATIC

REACTIONS (1)
  - Diarrhoea [None]
